FAERS Safety Report 6672147-0 (Version None)
Quarter: 2010Q2

REPORT INFORMATION
  Report Type: 
  Country: None (occurrence: None)
  Receive Date: 20100407
  Receipt Date: 20100407
  Transmission Date: 20101027
  Serious: Yes (Other)
  Sender: FDA-Public Use
  Company Number: None

PATIENT
  Age: 58 Year
  Sex: Female
  Weight: 69.8539 kg

DRUGS (2)
  1. DICLOFENAC SODIUM [Suspect]
     Indication: INFLAMMATION
     Dosage: 1 TABLET 2 TIMES DAILY ORAL WITH FOOD
     Route: 048
     Dates: start: 20100318, end: 20100404
  2. DICLOFENAC SODIUM [Suspect]
     Indication: PAIN
     Dosage: 1 TABLET 2 TIMES DAILY ORAL WITH FOOD
     Route: 048
     Dates: start: 20100318, end: 20100404

REACTIONS (4)
  - GAIT DISTURBANCE [None]
  - MOVEMENT DISORDER [None]
  - OEDEMA PERIPHERAL [None]
  - PAIN [None]
